FAERS Safety Report 13234946 (Version 1)
Quarter: 2017Q1

REPORT INFORMATION
  Report Type: Spontaneous
  Country: US (occurrence: US)
  Receive Date: 20170215
  Receipt Date: 20170215
  Transmission Date: 20170428
  Serious: No
  Sender: FDA-Public Use
  Company Number: US-PFIZER INC-2017062226

PATIENT
  Sex: Female

DRUGS (1)
  1. NEURONTIN [Suspect]
     Active Substance: GABAPENTIN
     Dosage: UNK
     Dates: start: 201604, end: 2016

REACTIONS (3)
  - Vomiting [Unknown]
  - Nausea [Unknown]
  - Sedation [Unknown]

NARRATIVE: CASE EVENT DATE: 2016
